FAERS Safety Report 19750326 (Version 1)
Quarter: 2021Q3

REPORT INFORMATION
  Report Type: Spontaneous
  Country: US (occurrence: US)
  Receive Date: 20210826
  Receipt Date: 20210826
  Transmission Date: 20211014
  Serious: Yes (Death)
  Sender: FDA-Public Use
  Company Number: None

PATIENT
  Age: 48 Year
  Sex: Male
  Weight: 182 kg

DRUGS (1)
  1. TOCILIZUMAB. [Suspect]
     Active Substance: TOCILIZUMAB
     Indication: COVID-19
     Dates: start: 20210818, end: 20210818

REACTIONS (4)
  - Leukocytosis [None]
  - Death [None]
  - Hypotension [None]
  - General physical health deterioration [None]

NARRATIVE: CASE EVENT DATE: 20210823
